FAERS Safety Report 7628932-1 (Version None)
Quarter: 2011Q3

REPORT INFORMATION
  Report Type: 
  Country: None (occurrence: None)
  Receive Date: 20110722
  Receipt Date: 20110628
  Transmission Date: 20111222
  Serious: No
  Sender: FDA-Public Use
  Company Number: US-B.I. PHARMACEUTICALS,INC./RIDGEFIELD-2011-BP-11658BP

PATIENT
  Sex: Female

DRUGS (11)
  1. CLORAZEPATE DIPOTASSIUM [Concomitant]
     Indication: ANXIETY
     Dosage: 22.5 MG
     Route: 048
     Dates: start: 19780101
  2. INDERAL [Concomitant]
     Indication: ANXIETY
     Dosage: 60 MG
     Route: 048
     Dates: start: 19780101
  3. INDERAL [Concomitant]
     Indication: CARDIAC VALVE DISEASE
  4. LEVOTHYROXINE SODIUM [Concomitant]
     Indication: THYROID DISORDER
     Dosage: 50 MCG
     Route: 048
     Dates: start: 20080101
  5. ASPIRIN [Concomitant]
     Indication: CHEST PAIN
  6. SPIRIVA [Suspect]
     Indication: CHRONIC OBSTRUCTIVE PULMONARY DISEASE
     Dosage: 18 MCG
     Route: 055
     Dates: start: 20090101
  7. INDERAL [Concomitant]
     Indication: CARDIAC DISORDER
  8. TRANXENE [Concomitant]
     Indication: ANXIETY
     Dosage: 7.5 MG
     Dates: start: 19780101
  9. SPIRIVA [Suspect]
     Indication: EMPHYSEMA
  10. LEVOTHYROXINE SODIUM [Concomitant]
     Indication: HYPOTHYROIDISM
  11. SYNTHROID [Concomitant]
     Indication: HYPOTHYROIDISM

REACTIONS (12)
  - DYSPHONIA [None]
  - ASTHENIA [None]
  - HYPERHIDROSIS [None]
  - TREMOR [None]
  - VISION BLURRED [None]
  - EMPHYSEMA [None]
  - DYSPNOEA [None]
  - HEADACHE [None]
  - WEIGHT INCREASED [None]
  - FATIGUE [None]
  - CHRONIC OBSTRUCTIVE PULMONARY DISEASE [None]
  - VISUAL ACUITY REDUCED [None]
